FAERS Safety Report 8033871-0 (Version None)
Quarter: 2012Q1

REPORT INFORMATION
  Report Type: 
  Country: None (occurrence: None)
  Receive Date: 20120110
  Receipt Date: 20120104
  Transmission Date: 20120608
  Serious: No
  Sender: FDA-Public Use
  Company Number: US-PFIZER INC-2012002952

PATIENT
  Sex: Female
  Weight: 54 kg

DRUGS (4)
  1. DIOVAN [Concomitant]
     Indication: HYPERTENSION
     Dosage: UNK
  2. CHANTIX [Suspect]
     Dosage: 1 MG, 2X/DAY
     Route: 048
  3. CHANTIX [Suspect]
     Indication: SMOKING CESSATION THERAPY
     Dosage: 0.5 MG, 1X/DAY
     Route: 048
     Dates: start: 20111227
  4. ESTRATEST [Concomitant]
     Dosage: UNK
     Dates: start: 19780101

REACTIONS (2)
  - VOMITING [None]
  - ABNORMAL DREAMS [None]
